FAERS Safety Report 5206502-2 (Version None)
Quarter: 2007Q1

REPORT INFORMATION
  Report Type: 
  Country: None (occurrence: None)
  Receive Date: 20070111
  Receipt Date: 20070108
  Transmission Date: 20070707
  Serious: Yes (Hospitalization)
  Sender: FDA-Public Use
  Company Number: SG-BRISTOL-MYERS SQUIBB COMPANY-13606058

PATIENT
  Age: 52 Year
  Sex: Male

DRUGS (5)
  1. ENTECAVIR [Suspect]
     Indication: HEPATITIS B
     Dosage: RESTARTED ON 12-DEC-2006 AND CONTINUES
     Route: 048
     Dates: start: 20060902, end: 20060909
  2. SPIRONOLACTONE [Concomitant]
     Dates: start: 20060801
  3. VITAMIN B6 [Concomitant]
     Dates: start: 20060411
  4. BEN GAY [Concomitant]
     Dates: start: 20060101
  5. ATENOLOL [Concomitant]
     Dates: start: 19980101

REACTIONS (1)
  - GASTROENTERITIS [None]
